FAERS Safety Report 8530290-5 (Version None)
Quarter: 2012Q3

REPORT INFORMATION
  Report Type: 
  Country: None (occurrence: None)
  Receive Date: 20120711
  Receipt Date: 20120625
  Transmission Date: 20120928
  Serious: Yes (Hospitalization, Other)
  Sender: FDA-Public Use
  Company Number: 2012MA007905

PATIENT
  Age: 36 Year
  Sex: Female

DRUGS (14)
  1. OLANZAPINE [Concomitant]
  2. METHAMPHETAMINE HYDROCHLORIDE [Concomitant]
  3. MIRTAZAPINE [Concomitant]
  4. FEVERALL [Suspect]
     Dosage: PRN
  5. FENOFIBRATE [Concomitant]
  6. MARIJUANA [Concomitant]
  7. DIVALPROEX SODIUM [Concomitant]
  8. LEVETIRACETAM [Concomitant]
  9. ACETAMINOPHEN [Concomitant]
  10. ETHANOL [Concomitant]
  11. LACTULOSE [Concomitant]
  12. DEXTROMETHORPHAN [Concomitant]
  13. OMEPRAZOLE [Concomitant]
  14. PROMETHAZINE [Concomitant]

REACTIONS (10)
  - SOMNOLENCE [None]
  - TACHYPNOEA [None]
  - TACHYCARDIA [None]
  - RENAL IMPAIRMENT [None]
  - PALLOR [None]
  - METABOLIC ACIDOSIS [None]
  - MALNUTRITION [None]
  - PULSE PRESSURE DECREASED [None]
  - CONTINUOUS HAEMODIAFILTRATION [None]
  - BLOOD PRESSURE DECREASED [None]
